FAERS Safety Report 14207239 (Version 1)
Quarter: 2017Q4

REPORT INFORMATION
  Report Type: Spontaneous
  Country: US (occurrence: US)
  Receive Date: 20171121
  Receipt Date: 20171121
  Transmission Date: 20180321
  Serious: Yes (Other)
  Sender: FDA-Public Use
  Company Number: US-JNJFOC-20171014028

PATIENT
  Sex: Female
  Weight: 74.39 kg

DRUGS (1)
  1. INVEGA SUSTENNA [Suspect]
     Active Substance: PALIPERIDONE PALMITATE
     Indication: PRODUCT USED FOR UNKNOWN INDICATION
     Route: 030
     Dates: start: 2010

REACTIONS (4)
  - Vision blurred [Not Recovered/Not Resolved]
  - Pyrexia [Unknown]
  - Type 2 diabetes mellitus [Unknown]
  - Malaise [Unknown]

NARRATIVE: CASE EVENT DATE: 2010
